FAERS Safety Report 5088455-3 (Version None)
Quarter: 2006Q3

REPORT INFORMATION
  Report Type: 
  Country: None (occurrence: None)
  Receive Date: 20060822
  Receipt Date: 20060809
  Transmission Date: 20061208
  Serious: Yes (Hospitalization)
  Sender: FDA-Public Use
  Company Number: 2006097879

PATIENT
  Age: 53 Year
  Sex: Male

DRUGS (12)
  1. ALDACTONE [Suspect]
     Indication: DRUG USE FOR UNKNOWN INDICATION
     Dosage: 1DF (75 MG, 1 IN 1 D), ORAL
     Route: 048
  2. MORPHINE SULFATE [Suspect]
     Indication: DRUG USE FOR UNKNOWN INDICATION
     Dosage: UNKNOWN (5 MG, UNKNOWN), ORAL
     Route: 048
     Dates: start: 20060705, end: 20060710
  3. STABLON (TIANEPTINE) [Suspect]
     Indication: DEPRESSION
     Dosage: 3DF (12.5 MG, INTERVAL: EVERY DAY), ORAL
     Route: 048
  4. PROPRANOLOL [Suspect]
     Indication: DRUG USE FOR UNKNOWN INDICATION
     Dosage: 1 DF (160 MG, 1 IN 1 D), ORAL
     Route: 048
  5. DRUG, UNSPECIFIED (DRUG, UNSPECIFIED) [Suspect]
     Indication: CIRRHOSIS ALCOHOLIC
     Dosage: 3DF (INTERVAL: EVERY DAY), ORAL
     Route: 048
     Dates: start: 20060106, end: 20060713
  6. DAFALGAN CODEINE (CODEINE PHOSPHATE, PARACETAMOL0 [Suspect]
     Indication: DRUG USE FOR UNKNOWN INDICATION
     Dosage: 3 DF (DAILY), ORAL
     Route: 048
     Dates: start: 20060705, end: 20060710
  7. PYRIDOXINE HCL [Concomitant]
  8. INSULIN GLARGINE (INSULIN GLARGINE) [Concomitant]
  9. NOVORAPID (INSULIN ASPART) [Concomitant]
  10. AMOXICILLIN TRIHYDRATE [Concomitant]
  11. VITAMIN B1 AND B6 (PYRIDOXINE, THIAMINE) [Concomitant]
  12. LACTULOSE [Concomitant]

REACTIONS (4)
  - BLOOD ALBUMIN DECREASED [None]
  - HEPATIC ENCEPHALOPATHY [None]
  - INFECTION [None]
  - PLATELET COUNT DECREASED [None]
